FAERS Safety Report 6589226-9 (Version None)
Quarter: 2010Q1

REPORT INFORMATION
  Report Type: 
  Country: None (occurrence: None)
  Receive Date: 20100212
  Receipt Date: 20100126
  Transmission Date: 20100710
  Serious: Yes (Hospitalization)
  Sender: FDA-Public Use
  Company Number: 453385

PATIENT
  Age: 41 Year
  Sex: Female

DRUGS (7)
  1. VANCOMYCIN [Suspect]
     Dosage: 2 MG, INTRAVENOUS
     Route: 042
     Dates: start: 20091114, end: 20091120
  2. (DEFLAMON) [Concomitant]
  3. (AURANTIIN) [Concomitant]
  4. DEXAMETHASONE [Concomitant]
  5. (MERREM /01250501/) [Concomitant]
  6. DIFLUCAN [Concomitant]
  7. (CLEXANE) [Concomitant]

REACTIONS (1)
  - RASH MACULO-PAPULAR [None]
